FAERS Safety Report 6620293-X (Version None)
Quarter: 2010Q1

REPORT INFORMATION
  Report Type: 
  Country: None (occurrence: None)
  Receive Date: 20100308
  Receipt Date: 20100308
  Transmission Date: 20100710
  Serious: No
  Sender: FDA-Public Use
  Company Number: None

PATIENT
  Sex: Male
  Weight: 98.4306 kg

DRUGS (1)
  1. CHANTIX [Suspect]
     Dosage: 1MG BID PO
     Route: 048
     Dates: start: 20091207, end: 20100303

REACTIONS (1)
  - RETINAL ARTERY OCCLUSION [None]
